FAERS Safety Report 6589147-1 (Version None)
Quarter: 2010Q1

REPORT INFORMATION
  Report Type: 
  Country: None (occurrence: None)
  Receive Date: 20100218
  Receipt Date: 20100201
  Transmission Date: 20100710
  Serious: Yes (Hospitalization)
  Sender: FDA-Public Use
  Company Number: PHHY2010DE05822

PATIENT
  Sex: Male
  Weight: 80 kg

DRUGS (8)
  1. ALISKIREN ALI+ [Suspect]
     Indication: HYPERTENSION
     Dosage: 300 MG/DAY
     Dates: start: 20081118
  2. DIOVAN [Suspect]
     Indication: HYPERTENSION
     Dosage: 160 MG/DAY
     Dates: start: 20090402
  3. LOCOL [Suspect]
     Indication: LIPIDS
     Dosage: 80 MG/DAY
  4. AMLODIPINE [Concomitant]
     Indication: HYPERTENSION
     Dosage: 10 MG/DAY
     Dates: start: 20081108
  5. TOREM [Concomitant]
     Indication: HYPERTENSION
     Dosage: 10 MG/DAY
  6. BISOPROLOL FUMARATE [Concomitant]
     Indication: HEART RATE
     Dosage: 5 MG /DAY
  7. ACETYLSALICYLIC ACID [Concomitant]
     Indication: PLATELET AGGREGATION INHIBITION
     Dosage: 100 MG/DAY
  8. DICLOFENAC [Concomitant]
     Indication: PAIN
     Dosage: 100 MG/DAY

REACTIONS (6)
  - BLOOD CREATININE [None]
  - COLECTOMY [None]
  - COLON CANCER [None]
  - HYPERTENSION [None]
  - NEPHROPATHY TOXIC [None]
  - RENAL FAILURE [None]
